FAERS Safety Report 13505151 (Version 1)
Quarter: 2017Q2

REPORT INFORMATION
  Report Type: Spontaneous
  Country: DE (occurrence: DE)
  Receive Date: 20170502
  Receipt Date: 20170502
  Transmission Date: 20170830
  Serious: Yes (Other)
  Sender: FDA-Public Use
  Company Number: DE-TEVA-764738GER

PATIENT
  Age: 65 Year
  Sex: Female

DRUGS (10)
  1. LORAZEPAM. [Concomitant]
     Active Substance: LORAZEPAM
     Indication: EPILEPSY
     Dosage: 1 MG/D PRN
     Route: 065
  2. LEVETIRACETAM. [Suspect]
     Active Substance: LEVETIRACETAM
     Indication: EPILEPSY
     Dosage: 2750 MILLIGRAM DAILY;
     Route: 065
  3. TEMOZOLOMIDE. [Suspect]
     Active Substance: TEMOZOLOMIDE
     Indication: GLIOBLASTOMA MULTIFORME
     Dosage: 50 MG/M2 DAILY; AS A PART OF RADIOCHEMOTHERAPY
     Route: 048
     Dates: start: 20140526, end: 201406
  4. VALPROIC ACID. [Suspect]
     Active Substance: VALPROIC ACID
     Route: 065
  5. ARTESUNATE [Interacting]
     Active Substance: ARTESUNATE
     Indication: GLIOBLASTOMA MULTIFORME
     Dosage: 200 MILLIGRAM DAILY; AS A PART OF RADIOCHEMOTHERAPY
     Route: 048
     Dates: start: 20150920, end: 20151020
  6. ONDANSETRON [Concomitant]
     Active Substance: ONDANSETRON
     Indication: PROPHYLAXIS OF NAUSEA AND VOMITING
     Dosage: 8 MILLIGRAM DAILY;
     Route: 065
  7. LEVETIRACETAM. [Suspect]
     Active Substance: LEVETIRACETAM
     Indication: EPILEPSY
     Dosage: 1000 MG/D STARTING DOSE, ESCALATED TO 2750 MG/D
     Route: 065
  8. TEMOZOLOMIDE. [Interacting]
     Active Substance: TEMOZOLOMIDE
     Indication: GLIOBLASTOMA MULTIFORME
     Route: 048
     Dates: start: 201406
  9. TEMOZOLOMIDE. [Interacting]
     Active Substance: TEMOZOLOMIDE
     Indication: GLIOBLASTOMA MULTIFORME
     Dosage: 50 MG/M2 DAILY; AS A PART OF RADIOCHEMOTHERAPY
     Route: 048
  10. CLOBAZAM [Concomitant]
     Active Substance: CLOBAZAM
     Indication: EPILEPSY
     Dosage: 5 MG/D PRN
     Route: 065

REACTIONS (10)
  - Depressed mood [Recovered/Resolved]
  - Off label use [Unknown]
  - Drug interaction [Recovered/Resolved]
  - Chest pain [Recovering/Resolving]
  - Hepatotoxicity [Recovered/Resolved]
  - Dyspepsia [Recovered/Resolved]
  - Fatigue [Recovered/Resolved]
  - Weight decreased [Recovered/Resolved]
  - Nausea [Recovered/Resolved]
  - Asthenia [Recovered/Resolved]
